FAERS Safety Report 23977211 (Version 1)
Quarter: 2024Q2

REPORT INFORMATION
  Report Type: Spontaneous
  Country: PK (occurrence: PK)
  Receive Date: 20240614
  Receipt Date: 20240614
  Transmission Date: 20240716
  Serious: Yes (Other)
  Sender: FDA-Public Use
  Company Number: PK-SA-2024SA176424

PATIENT

DRUGS (3)
  1. GLYBURIDE [Suspect]
     Active Substance: GLYBURIDE
     Indication: Neonatal diabetes mellitus
     Dosage: (0.8 TO 1.0) MG/KG, QD
     Route: 048
  2. INSULIN NOS [Concomitant]
     Active Substance: INSULIN NOS
     Indication: Neonatal diabetes mellitus
     Dosage: UNK UNK, QD (1.3-2.3 UNITS/KG)
     Route: 058
  3. INSULIN NOS [Concomitant]
     Active Substance: INSULIN NOS
     Indication: Diabetic ketoacidosis

REACTIONS (1)
  - Hypoglycaemia [Recovering/Resolving]
